FAERS Safety Report 8102762-9 (Version None)
Quarter: 2012Q1

REPORT INFORMATION
  Report Type: 
  Country: None (occurrence: None)
  Receive Date: 20120201
  Receipt Date: 20120127
  Transmission Date: 20120608
  Serious: No
  Sender: FDA-Public Use
  Company Number: US-PFIZER INC-2012023552

PATIENT
  Sex: Female
  Weight: 122 kg

DRUGS (5)
  1. LIPITOR [Concomitant]
     Dosage: UNK
  2. VALSARTAN [Concomitant]
     Dosage: UNK
  3. LEVOXYL [Suspect]
     Indication: HYPOTHYROIDISM
     Dosage: 0.1 MG, 1X/DAY
     Route: 048
     Dates: start: 19800101
  4. CARVEDILOL [Concomitant]
     Dosage: UNK
  5. NEXIUM [Concomitant]
     Dosage: UNK

REACTIONS (1)
  - FOREIGN BODY [None]
